FAERS Safety Report 15824882 (Version 3)
Quarter: 2019Q2

REPORT INFORMATION
  Report Type: Report from Study
  Country: FR (occurrence: FR)
  Receive Date: 20190115
  Receipt Date: 20190411
  Transmission Date: 20190711
  Serious: Yes (Life-Threatening, Hospitalization)
  Sender: FDA-Public Use
  Company Number: FR-ROCHE-2244414

PATIENT
  Age: 78 Year
  Sex: Male
  Weight: 88 kg

DRUGS (7)
  1. PACLITAXEL. [Suspect]
     Active Substance: PACLITAXEL
     Indication: COLORECTAL CANCER
     Route: 065
  2. IRINOTECAN [Suspect]
     Active Substance: IRINOTECAN
     Indication: COLORECTAL CANCER
     Route: 065
  3. OXALIPLATIN. [Suspect]
     Active Substance: OXALIPLATIN
     Indication: COLORECTAL CANCER
     Dosage: PRESSURIZED INTRAPERITONEAL AEROSOL CHEMOTHERAPY OXALIPLATIN 92 MG/M2 OF BODY SURFACE IN 150ML OF NA
     Route: 065
  4. SODIUM CHLORIDE. [Concomitant]
     Active Substance: SODIUM CHLORIDE
     Dosage: PRESSURIZED INTRAPERITONEAL AEROSOL CHEMOTHERAPY OXALIPLATIN 92 MG/M2 OF BODY SURFACE IN 150ML OF NA
     Route: 065
  5. 5-FU [Suspect]
     Active Substance: FLUOROURACIL
     Indication: COLORECTAL CANCER
     Route: 065
  6. CISPLATIN. [Suspect]
     Active Substance: CISPLATIN
     Indication: COLORECTAL CANCER
     Route: 065
  7. BEVACIZUMAB. [Suspect]
     Active Substance: BEVACIZUMAB
     Indication: COLORECTAL CANCER
     Route: 065

REACTIONS (4)
  - Hypersensitivity [Unknown]
  - Generalised erythema [Unknown]
  - Drug hypersensitivity [Unknown]
  - Anaphylactic reaction [Unknown]
